FAERS Safety Report 6665904-8 (Version None)
Quarter: 2010Q2

REPORT INFORMATION
  Report Type: 
  Country: None (occurrence: None)
  Receive Date: 20100402
  Receipt Date: 20100330
  Transmission Date: 20101027
  Serious: Yes (Hospitalization)
  Sender: FDA-Public Use
  Company Number: SE-ROCHE-694519

PATIENT

DRUGS (1)
  1. BEVACIZUMAB [Suspect]
     Dosage: DOSE AND FREQUENCY AS PER PROTOCOL
     Route: 065
     Dates: start: 20090629, end: 20100309

REACTIONS (1)
  - HYPERBILIRUBINAEMIA [None]
